FAERS Safety Report 9633750 (Version 3)
Quarter: 2013Q4

REPORT INFORMATION
  Report Type: Spontaneous
  Country: US (occurrence: US)
  Receive Date: 20131021
  Receipt Date: 20131106
  Transmission Date: 20140711
  Serious: No
  Sender: FDA-Public Use
  Company Number: US-PFIZER INC-2013294718

PATIENT
  Sex: Female

DRUGS (2)
  1. GLUCOTROL XL [Suspect]
     Dosage: 5 MG, UNK
     Dates: start: 20120406, end: 20130927
  2. GLUCOTROL [Suspect]
     Dosage: 5 MG, UNK

REACTIONS (3)
  - Drug prescribing error [Unknown]
  - Malaise [Unknown]
  - Blood glucose abnormal [Unknown]
